FAERS Safety Report 21047564 (Version 1)
Quarter: 2022Q3

REPORT INFORMATION
  Report Type: Spontaneous
  Country: US (occurrence: US)
  Receive Date: 20220706
  Receipt Date: 20220706
  Transmission Date: 20221027
  Serious: Yes (Other)
  Sender: FDA-Public Use
  Company Number: US-UNITED THERAPEUTICS-UNT-2022-014359

PATIENT
  Sex: Female

DRUGS (2)
  1. REMODULIN [Suspect]
     Active Substance: TREPROSTINIL
     Indication: Pulmonary arterial hypertension
     Dosage: UNK, CONTINUING
     Route: 058
     Dates: start: 20210812
  2. REMODULIN [Suspect]
     Active Substance: TREPROSTINIL
     Dosage: 0.0803 ?G/KG, CONTINUING
     Route: 058

REACTIONS (8)
  - Dyspnoea at rest [Unknown]
  - Dyspnoea exertional [Unknown]
  - Cough [Unknown]
  - Diarrhoea [Unknown]
  - Headache [Unknown]
  - Weight decreased [Unknown]
  - Respiration abnormal [Unknown]
  - Oxygen consumption increased [Unknown]
